FAERS Safety Report 7488903-5 (Version None)
Quarter: 2011Q2

REPORT INFORMATION
  Report Type: 
  Country: None (occurrence: None)
  Receive Date: 20110518
  Receipt Date: 20110412
  Transmission Date: 20111010
  Serious: Yes (Other)
  Sender: FDA-Public Use
  Company Number: US-BAYER-201041834NA

PATIENT
  Age: 30 Year
  Sex: Female
  Weight: 83.9 kg

DRUGS (4)
  1. YAZ [Suspect]
  2. YAZ [Suspect]
     Indication: CONTRACEPTION
     Dosage: UNK UNK, UNK
     Route: 048
     Dates: start: 20090401, end: 20100101
  3. YAZ [Suspect]
     Indication: PREMENSTRUAL SYNDROME
  4. LOESTRIN 1.5/30 [Concomitant]
     Dosage: UNK
     Dates: end: 20090401

REACTIONS (2)
  - GALLBLADDER INJURY [None]
  - CHOLECYSTITIS [None]
